FAERS Safety Report 6302407-4 (Version None)
Quarter: 2009Q3

REPORT INFORMATION
  Report Type: 
  Country: None (occurrence: None)
  Receive Date: 20090810
  Receipt Date: 20090731
  Transmission Date: 20100115
  Serious: Yes (Hospitalization)
  Sender: FDA-Public Use
  Company Number: BE-ELI_LILLY_AND_COMPANY-BE200907007187

PATIENT
  Age: 51 Year
  Sex: Male
  Weight: 60 kg

DRUGS (19)
  1. PEMETREXED [Suspect]
     Indication: NON-SMALL CELL LUNG CANCER
     Dosage: 500 MG/M2, ON DAY 1 EVERY 21 DAYS
     Route: 042
     Dates: start: 20090324, end: 20090527
  2. CISPLATIN [Suspect]
     Indication: NON-SMALL CELL LUNG CANCER
     Dosage: 75 MG/M2, ON DAY 1 EVERY 21 DAYS
     Route: 042
     Dates: start: 20090324, end: 20090527
  3. BLINDED THERAPY [Suspect]
     Indication: NON-SMALL CELL LUNG CANCER
     Dosage: ON DAY 1 EVERY 21 DAYS
     Route: 042
     Dates: start: 20090615
  4. FOLIC ACID [Concomitant]
     Indication: PROPHYLAXIS
     Dates: start: 20090310
  5. VITAMIN B-12 [Concomitant]
     Indication: PROPHYLAXIS
     Dates: start: 20090310, end: 20090727
  6. DEXAMETHASONE [Concomitant]
     Indication: PROPHYLAXIS
     Dates: start: 20090727, end: 20090729
  7. ZOMETA [Concomitant]
     Dosage: UNK, MONTHLY (1/M)
     Dates: start: 20090225
  8. GARDENAL [Concomitant]
     Dates: start: 19940101
  9. TENORMIN [Concomitant]
     Dates: start: 20030101
  10. MS DIRECT [Concomitant]
     Dates: start: 20090307
  11. DURAGESIC-100 [Concomitant]
     Dates: start: 20090226
  12. PARACETAMOL [Concomitant]
     Dosage: UNK, AS NEEDED
     Dates: start: 20090225
  13. PLAVIX [Concomitant]
     Dates: start: 20090326
  14. AUGMENTIN /SCH/ [Concomitant]
     Dates: start: 20090712, end: 20090728
  15. SPORANOX [Concomitant]
     Dates: start: 20090714, end: 20090724
  16. TERRAMYCINE [Concomitant]
     Dates: start: 20090724, end: 20090728
  17. GENTEAL [Concomitant]
     Dates: start: 20090728
  18. LORMETAZEPAM [Concomitant]
     Dates: start: 20090718, end: 20090728
  19. DAKTARIN                                /BEL/ [Concomitant]
     Dates: start: 20090722

REACTIONS (1)
  - GASTRIC ULCER HAEMORRHAGE [None]
